FAERS Safety Report 7924960-7 (Version None)
Quarter: 2011Q4

REPORT INFORMATION
  Report Type: 
  Country: None (occurrence: None)
  Receive Date: 20111118
  Receipt Date: 20110330
  Transmission Date: 20120403
  Serious: No
  Sender: FDA-Public Use
  Company Number: US-AMGEN-USASP2010007891

PATIENT
  Age: 72 Year
  Sex: Male

DRUGS (2)
  1. ENBREL [Suspect]
     Indication: PSORIASIS
     Dosage: 50 MG, 2 TIMES/WK
     Dates: start: 20100907
  2. ENBREL [Suspect]
     Dates: start: 20100101

REACTIONS (8)
  - OEDEMA PERIPHERAL [None]
  - BLOOD POTASSIUM INCREASED [None]
  - CHEST PAIN [None]
  - EYE SWELLING [None]
  - JOINT SWELLING [None]
  - SKIN BURNING SENSATION [None]
  - EYE IRRITATION [None]
  - ERYTHEMA [None]
